FAERS Safety Report 6407732-4 (Version None)
Quarter: 2009Q4

REPORT INFORMATION
  Report Type: 
  Country: None (occurrence: None)
  Receive Date: 20091020
  Receipt Date: 20091008
  Transmission Date: 20100525
  Serious: Yes (Death)
  Sender: FDA-Public Use
  Company Number: JP-AVENTIS-200912576JP

PATIENT
  Age: 74 Year
  Sex: Male

DRUGS (1)
  1. TAXOTERE [Suspect]
     Route: 041
     Dates: start: 20090902, end: 20090902

REACTIONS (2)
  - BLOOD PRESSURE DECREASED [None]
  - SHOCK [None]
